FAERS Safety Report 10790652 (Version 2)
Quarter: 2015Q2

REPORT INFORMATION
  Report Type: Report from Study
  Country: BR (occurrence: BR)
  Receive Date: 20150212
  Receipt Date: 20150410
  Transmission Date: 20150821
  Serious: Yes (Other)
  Sender: FDA-Public Use
  Company Number: BR-BAYER-2015-017807

PATIENT
  Sex: Female

DRUGS (2)
  1. PONDERA [Concomitant]
     Active Substance: PAROXETINE HYDROCHLORIDE
     Indication: ANXIETY
     Dosage: 1 DF AT 8PM
     Route: 048
  2. BETAFERON [Suspect]
     Active Substance: INTERFERON BETA-1B
     Indication: AMYOTROPHIC LATERAL SCLEROSIS
     Dosage: DOSE OF ALL AMPOULE, QOD
     Route: 058
     Dates: start: 201003

REACTIONS (8)
  - Pyrexia [Recovered/Resolved]
  - Product use issue [None]
  - Injection site reaction [Not Recovered/Not Resolved]
  - Injection site reaction [Recovered/Resolved]
  - Liquid product physical issue [None]
  - Fatigue [Recovered/Resolved]
  - Abasia [Recovered/Resolved]
  - Erythema [Recovered/Resolved]

NARRATIVE: CASE EVENT DATE: 20140203
